FAERS Safety Report 23625260 (Version 1)
Quarter: 2024Q1

REPORT INFORMATION
  Report Type: Spontaneous
  Country: US (occurrence: US)
  Receive Date: 20240313
  Receipt Date: 20240313
  Transmission Date: 20240410
  Serious: Yes (Other)
  Sender: FDA-Public Use
  Company Number: US-AMGEN-USASP2024046129

PATIENT
  Age: 14 Year
  Sex: Female

DRUGS (1)
  1. INFLIXIMAB [Suspect]
     Active Substance: INFLIXIMAB
     Indication: Crohn^s disease
     Dosage: UNK
     Route: 065

REACTIONS (4)
  - Crohn^s disease [Recovered/Resolved]
  - Ileal stenosis [Unknown]
  - Pyoderma gangrenosum [Unknown]
  - Therapy non-responder [Unknown]
